FAERS Safety Report 14474758 (Version 1)
Quarter: 2018Q1

REPORT INFORMATION
  Report Type: Spontaneous
  Country: US (occurrence: US)
  Receive Date: 20180201
  Receipt Date: 20180201
  Transmission Date: 20180509
  Serious: Yes (Other)
  Sender: FDA-Public Use
  Company Number: US-PFIZER INC-2018038624

PATIENT
  Age: 33 Year
  Sex: Female
  Weight: 98.43 kg

DRUGS (1)
  1. EFFEXOR [Suspect]
     Active Substance: VENLAFAXINE HYDROCHLORIDE
     Indication: ANXIETY
     Dosage: 75 MG, 1X/DAY
     Route: 048

REACTIONS (2)
  - Condition aggravated [Unknown]
  - Obesity [Unknown]
